FAERS Safety Report 14996145 (Version 1)
Quarter: 2018Q2

REPORT INFORMATION
  Report Type: Report from Study
  Country: US (occurrence: US)
  Receive Date: 20180611
  Receipt Date: 20180611
  Transmission Date: 20180711
  Serious: Yes (Other)
  Sender: FDA-Public Use
  Company Number: US-MYLANLABS-2018M1038922

PATIENT

DRUGS (7)
  1. FLUOROURACIL. [Suspect]
     Active Substance: FLUOROURACIL
     Indication: HEAD AND NECK CANCER
     Dosage: 750 MG/M2, QD, RECEIVED ON DAY 1 TO 4.
     Route: 065
  2. DOCETAXEL. [Suspect]
     Active Substance: DOCETAXEL
     Indication: HEAD AND NECK CANCER
     Dosage: 75 MG/M2, QD, RECEIVED ON DAY 1.
     Route: 005
  3. ERLOTINIB [Suspect]
     Active Substance: ERLOTINIB
     Indication: HEAD AND NECK CANCER
     Dosage: 100 MG, QD, RECEIVED ON DAY 1. AS INDUCTION CHEMOTHERAPY.
     Route: 048
  4. BEVACIZUMAB. [Suspect]
     Active Substance: BEVACIZUMAB
     Indication: HEAD AND NECK CANCER
     Dosage: 10 MG/KG,QD,RECEIVED EVERY OTHER WEEK UP TO WEEK 7 OF RADIOTHERAPY. AS CONCURRENT CHEMORADIOTHERAPY.
     Route: 065
  5. CISPLATIN. [Suspect]
     Active Substance: CISPLATIN
     Dosage: 30 MG/M2, QD, RECEIVED EVERY WEEK. AS CONCURRENT CHEMORADIOTHERAPY.
     Route: 065
  6. CISPLATIN. [Suspect]
     Active Substance: CISPLATIN
     Indication: HEAD AND NECK CANCER
     Dosage: 75 MG/M2, QD, RECEIVED ON DAY 1. AS INDUCTION CHEMOTHERAPY.
     Route: 065
  7. ERLOTINIB [Suspect]
     Active Substance: ERLOTINIB
     Dosage: RECEIVED AS CONCURRENT CHEMORADIOTHERAPY
     Route: 048

REACTIONS (1)
  - Abdominal wall abscess [Unknown]
